FAERS Safety Report 20637068 (Version 1)
Quarter: 2022Q1

REPORT INFORMATION
  Report Type: Report from Study
  Country: CO (occurrence: CO)
  Receive Date: 20220325
  Receipt Date: 20220325
  Transmission Date: 20220423
  Serious: Yes (Hospitalization)
  Sender: FDA-Public Use
  Company Number: CO-TAKEDA-2021TUS081054

PATIENT
  Age: 2 Year
  Sex: Female
  Weight: 12 kg

DRUGS (2)
  1. HUMAN IMMUNOGLOBULIN G\HYALURONIDASE RECOMBINANT HUMAN [Suspect]
     Active Substance: HUMAN IMMUNOGLOBULIN G\HYALURONIDASE RECOMBINANT HUMAN
     Indication: Combined immunodeficiency
     Dosage: 5 MILLIGRAM, Q4WEEKS
     Route: 058
     Dates: start: 20210423
  2. HUMAN IMMUNOGLOBULIN G\HYALURONIDASE RECOMBINANT HUMAN [Suspect]
     Active Substance: HUMAN IMMUNOGLOBULIN G\HYALURONIDASE RECOMBINANT HUMAN
     Dosage: 5 MILLIGRAM, Q6WEEKS
     Route: 058
     Dates: start: 20210423

REACTIONS (4)
  - Platelet count decreased [Recovering/Resolving]
  - Pain in extremity [Recovered/Resolved]
  - Anaemia [Recovering/Resolving]
  - Off label use [Unknown]

NARRATIVE: CASE EVENT DATE: 20211207
